FAERS Safety Report 7800413-1 (Version None)
Quarter: 2011Q4

REPORT INFORMATION
  Report Type: 
  Country: None (occurrence: None)
  Receive Date: 20111006
  Receipt Date: 20110928
  Transmission Date: 20120403
  Serious: Yes (Other)
  Sender: FDA-Public Use
  Company Number: CA-JNJFOC-20101006083

PATIENT
  Age: 23 Year
  Sex: Female
  Weight: 56.7 kg

DRUGS (1)
  1. EXTRA STRENGTH TYLENOL SINUS DAYTIME [Suspect]
     Indication: PAIN
     Dosage: ONE TABLET
     Route: 048

REACTIONS (3)
  - CHOKING [None]
  - DYSPNOEA [None]
  - FOREIGN BODY [None]
